FAERS Safety Report 25763730 (Version 1)
Quarter: 2025Q3

REPORT INFORMATION
  Report Type: Spontaneous
  Country: US (occurrence: US)
  Receive Date: 20250905
  Receipt Date: 20250905
  Transmission Date: 20251021
  Serious: No
  Sender: DOMPE FARMACEUTICI
  Company Number: US-FARMAPROD-202410-3766

PATIENT
  Sex: Male
  Weight: 86.18 kg

DRUGS (15)
  1. OXERVATE [Suspect]
     Active Substance: CENEGERMIN-BKBJ
     Indication: Neurotrophic keratopathy
     Route: 047
     Dates: start: 20240919
  2. MAGNESIUM [Concomitant]
     Active Substance: MAGNESIUM
  3. APPLE CIDER VINEGAR [Concomitant]
     Active Substance: APPLE CIDER VINEGAR
  4. FISH OIL [Concomitant]
     Active Substance: FISH OIL
  5. VITAMIN D3 [Concomitant]
     Active Substance: CHOLECALCIFEROL
  6. VITAMIN B COMPLEX [Concomitant]
     Active Substance: CYANOCOBALAMIN\DEXPANTHENOL\NIACINAMIDE\PYRIDOXINE HYDROCHLORIDE\RIBOFLAVIN 5^-PHOSPHATE SODIUM\THIA
  7. METHOCARBAMOL [Concomitant]
     Active Substance: METHOCARBAMOL
  8. GABAPENTIN [Concomitant]
     Active Substance: GABAPENTIN
  9. SIMVASTATIN [Concomitant]
     Active Substance: SIMVASTATIN
  10. EZETIMIBE [Concomitant]
     Active Substance: EZETIMIBE
  11. METFORMIN HYDROCHLORIDE [Concomitant]
     Active Substance: METFORMIN HYDROCHLORIDE
  12. DULOXETINE HYDROCHLORIDE [Concomitant]
     Active Substance: DULOXETINE HYDROCHLORIDE
  13. CLONAZEPAM [Concomitant]
     Active Substance: CLONAZEPAM
  14. ELIQUIS [Concomitant]
     Active Substance: APIXABAN
  15. NEOMYCIN-POLYMYXIN-DEXAMETH [Concomitant]

REACTIONS (1)
  - Eyelid pain [Unknown]
